FAERS Safety Report 5007740-4 (Version None)
Quarter: 2006Q2

REPORT INFORMATION
  Report Type: 
  Country: None (occurrence: None)
  Receive Date: 20060522
  Receipt Date: 20060428
  Transmission Date: 20061013
  Serious: Yes (Hospitalization)
  Sender: FDA-Public Use
  Company Number: PHBS2006NO06351

PATIENT

DRUGS (3)
  1. SANDIMMUNE [Suspect]
     Indication: SARCOIDOSIS
     Dosage: 200 MG, BID
     Route: 042
     Dates: start: 20060428, end: 20060428
  2. SANDIMMUNE [Suspect]
     Dosage: 125 MG, BID
     Route: 048
     Dates: start: 20011101, end: 20030101
  3. SANDIMMUNE [Suspect]
     Dosage: 200 MG, BID
     Route: 048
     Dates: start: 20040101

REACTIONS (4)
  - C-REACTIVE PROTEIN INCREASED [None]
  - DYSPHAGIA [None]
  - HEART RATE INCREASED [None]
  - INCORRECT ROUTE OF DRUG ADMINISTRATION [None]
